FAERS Safety Report 7899639 (Version 7)
Quarter: 2012Q4

REPORT INFORMATION
  Report Type: Report from Study
  Country: US (occurrence: US)
  Receive Date: 20110414
  Receipt Date: 20121102
  Transmission Date: 20130627
  Serious: Yes (Hospitalization, Other)
  Sender: FDA-Public Use
  Company Number: US-JNJFOC-20110400893

PATIENT
  Age: 13 Year
  Sex: Male
  Weight: 40.2 kg

DRUGS (3)
  1. REMICADE [Suspect]
     Indication: INFLAMMATORY BOWEL DISEASE
     Route: 042
     Dates: start: 20090130, end: 20100312
  2. CIMZIA [Concomitant]
     Dates: start: 20101118, end: 20101213
  3. TACROLIMUS [Concomitant]

REACTIONS (1)
  - Crohn^s disease [Recovered/Resolved with Sequelae]
